FAERS Safety Report 6536705-6 (Version None)
Quarter: 2010Q1

REPORT INFORMATION
  Report Type: 
  Country: None (occurrence: None)
  Receive Date: 20100106
  Receipt Date: 20091221
  Transmission Date: 20100710
  Serious: Yes (Disabling, Other)
  Sender: FDA-Public Use
  Company Number: 2008AL007440

PATIENT
  Age: 32 Year
  Sex: Male

DRUGS (5)
  1. TRAMADOL HYDROCHLORIDE [Suspect]
     Indication: PERINEAL ABSCESS
     Dosage: 400 MG;PRN;PO
     Route: 048
     Dates: start: 20070123, end: 20080522
  2. OMEPRAZOLE [Concomitant]
  3. MAGNAPEN [Concomitant]
  4. METRONIDAZOLE [Concomitant]
  5. FLUOXETINE [Concomitant]

REACTIONS (4)
  - DEPRESSION [None]
  - EPILEPSY [None]
  - LOSS OF EMPLOYMENT [None]
  - UPPER LIMB FRACTURE [None]
